FAERS Safety Report 20382227 (Version 1)
Quarter: 2022Q1

REPORT INFORMATION
  Report Type: Spontaneous
  Country: RO (occurrence: RO)
  Receive Date: 20220127
  Receipt Date: 20220127
  Transmission Date: 20220424
  Serious: Yes (Other)
  Sender: FDA-Public Use
  Company Number: RO-AMGEN-ROUSP2022011028

PATIENT
  Sex: Male

DRUGS (1)
  1. BLINCYTO [Suspect]
     Active Substance: BLINATUMOMAB
     Indication: B precursor type acute leukaemia
     Dosage: UNK
     Route: 042

REACTIONS (8)
  - B precursor type acute leukaemia [Unknown]
  - Neurotoxicity [Unknown]
  - Agitation [Unknown]
  - Irritability [Unknown]
  - Insomnia [Unknown]
  - Headache [Unknown]
  - Somnolence [Unknown]
  - Pyrexia [Unknown]
